FAERS Safety Report 19883472 (Version 1)
Quarter: 2021Q3

REPORT INFORMATION
  Report Type: Spontaneous
  Country: GB (occurrence: GB)
  Receive Date: 20210926
  Receipt Date: 20210926
  Transmission Date: 20211014
  Serious: Yes (Other)
  Sender: FDA-Public Use
  Company Number: GB-CANTON LABORATORIES, LLC-2118824

PATIENT
  Age: 72 Year
  Sex: Female

DRUGS (15)
  1. LACTULOSE LIQUID [Concomitant]
     Active Substance: LACTULOSE
  2. COLCHICINE. [Concomitant]
     Active Substance: COLCHICINE
  3. DAKTACORT [Concomitant]
     Active Substance: HYDROCORTISONE\MICONAZOLE NITRATE
  4. MACROBID [Concomitant]
     Active Substance: NITROFURANTOIN\NITROFURANTOIN MONOHYDRATE
  5. GAVISCON ADVANCE [Concomitant]
     Active Substance: POTASSIUM BICARBONATE\SODIUM ALGINATE
  6. LEVOTHYROXINE. [Concomitant]
     Active Substance: LEVOTHYROXINE
  7. OVESTIN [Concomitant]
     Active Substance: ESTRIOL
  8. NAPROSYN [Suspect]
     Active Substance: NAPROXEN
     Indication: BACK PAIN
     Route: 048
     Dates: start: 20210903, end: 20210905
  9. MULTIVITAMIN [Concomitant]
     Active Substance: VITAMINS
  10. IBUPROFEN. [Concomitant]
     Active Substance: IBUPROFEN
  11. PARACETAMOL [Concomitant]
     Active Substance: ACETAMINOPHEN
  12. LANSOPRAZOLE. [Concomitant]
     Active Substance: LANSOPRAZOLE
  13. ATORVASTATIN CALCIUM. [Concomitant]
     Active Substance: ATORVASTATIN CALCIUM
  14. VITAMIN D [Concomitant]
     Active Substance: VITAMIN D NOS
  15. VITAMIN C [Concomitant]
     Active Substance: ASCORBIC ACID

REACTIONS (19)
  - Gingival swelling [Not Recovered/Not Resolved]
  - Lip blister [Not Recovered/Not Resolved]
  - Mouth swelling [Not Recovered/Not Resolved]
  - Axillary pain [Not Recovered/Not Resolved]
  - Oropharyngeal pain [Not Recovered/Not Resolved]
  - Lip swelling [Not Recovered/Not Resolved]
  - Swollen tongue [Not Recovered/Not Resolved]
  - Tongue blistering [Not Recovered/Not Resolved]
  - Lip pain [Not Recovered/Not Resolved]
  - Pharyngeal swelling [Not Recovered/Not Resolved]
  - Vulvovaginal pain [Not Recovered/Not Resolved]
  - Gingival pain [Not Recovered/Not Resolved]
  - Oral pain [Not Recovered/Not Resolved]
  - Glossodynia [Not Recovered/Not Resolved]
  - Oral mucosal blistering [Not Recovered/Not Resolved]
  - Urinary tract infection [Not Recovered/Not Resolved]
  - Gingival blister [Not Recovered/Not Resolved]
  - Erythema [Not Recovered/Not Resolved]
  - Oropharyngeal blistering [Not Recovered/Not Resolved]

NARRATIVE: CASE EVENT DATE: 20210905
